FAERS Safety Report 7059322-0 (Version None)
Quarter: 2010Q4

REPORT INFORMATION
  Report Type: 
  Country: None (occurrence: None)
  Receive Date: 20101025
  Receipt Date: 20101015
  Transmission Date: 20110411
  Serious: No
  Sender: FDA-Public Use
  Company Number: US-BIOGENIDEC-2010BI035894

PATIENT
  Age: 40 Year
  Sex: Female

DRUGS (2)
  1. AVONEX [Suspect]
     Indication: MULTIPLE SCLEROSIS
     Route: 030
     Dates: start: 20100401, end: 20100801
  2. AVONEX [Suspect]
     Route: 030
     Dates: start: 20100101

REACTIONS (2)
  - INFLUENZA LIKE ILLNESS [None]
  - TREMOR [None]
